FAERS Safety Report 10155584 (Version 4)
Quarter: 2014Q3

REPORT INFORMATION
  Report Type: Spontaneous
  Country: CA (occurrence: CA)
  Receive Date: 20140506
  Receipt Date: 20140806
  Transmission Date: 20150326
  Serious: Yes (Other)
  Sender: FDA-Public Use
  Company Number: PHHY2014CA054556

PATIENT
  Sex: Female

DRUGS (4)
  1. GILENYA [Suspect]
     Active Substance: FINGOLIMOD HYDROCHLORIDE
     Indication: RELAPSING-REMITTING MULTIPLE SCLEROSIS
     Dosage: UNK UKN, UNK
  2. MATERNA [Concomitant]
     Dosage: UNK UKN, UNK
     Route: 048
     Dates: start: 201307, end: 201402
  3. VITAMIN D [Concomitant]
     Active Substance: CHOLECALCIFEROL
     Indication: SUPPLEMENTATION THERAPY
     Dosage: 5000 IU, QD
     Route: 048
     Dates: start: 201307
  4. DICLECTIN [Concomitant]
     Active Substance: DOXYLAMINE\PYRIDOXINE
     Indication: VOMITING
     Dosage: UNK UKN, UNK
     Route: 048
     Dates: start: 201309, end: 201310

REACTIONS (8)
  - Maternal exposure during pregnancy [Unknown]
  - Myelitis transverse [Recovered/Resolved with Sequelae]
  - Paraplegia [Recovered/Resolved with Sequelae]
  - Delivery [Unknown]
  - Hypoaesthesia [Recovered/Resolved with Sequelae]
  - Pain [Recovered/Resolved with Sequelae]
  - Normal newborn [Unknown]
  - Multiple sclerosis relapse [Recovered/Resolved with Sequelae]
